FAERS Safety Report 17267205 (Version 1)
Quarter: 2020Q1

REPORT INFORMATION
  Report Type: Spontaneous
  Country: JP (occurrence: JP)
  Receive Date: 20200114
  Receipt Date: 20200114
  Transmission Date: 20200409
  Serious: Yes (Death)
  Sender: FDA-Public Use
  Company Number: JP-CELGENEUS-JPN-20200104444

PATIENT
  Age: 8 Decade
  Sex: Female

DRUGS (1)
  1. REVLIMID [Suspect]
     Active Substance: LENALIDOMIDE
     Indication: 5Q MINUS SYNDROME
     Dosage: UNKNOWN
     Route: 048
     Dates: start: 201910, end: 201912

REACTIONS (2)
  - Cellulitis [Fatal]
  - Sepsis [Fatal]

NARRATIVE: CASE EVENT DATE: 201912
